FAERS Safety Report 11929424 (Version 1)
Quarter: 2016Q1

REPORT INFORMATION
  Report Type: Spontaneous
  Country: None (occurrence: None)
  Receive Date: 20160119
  Receipt Date: 20160119
  Transmission Date: 20160526
  Serious: No
  Sender: FDA-Public Use
  Company Number: None

PATIENT
  Sex: Male

DRUGS (5)
  1. GABAPENTIN. [Suspect]
     Active Substance: GABAPENTIN
  2. LIPOZENE [Suspect]
     Active Substance: KONJAC MANNAN
  3. INVOKANA [Suspect]
     Active Substance: CANAGLIFLOZIN
  4. TRULICITY [Suspect]
     Active Substance: DULAGLUTIDE
  5. METFORMIN [Suspect]
     Active Substance: METFORMIN HYDROCHLORIDE

REACTIONS (2)
  - Blood glucose decreased [None]
  - Weight decreased [None]
